FAERS Safety Report 4962646-1 (Version None)
Quarter: 2006Q1

REPORT INFORMATION
  Report Type: 
  Country: None (occurrence: None)
  Receive Date: 20060201
  Receipt Date: 20051107
  Transmission Date: 20060701
  Serious: No
  Sender: FDA-Public Use
  Company Number: 2005PV004066

PATIENT
  Age: 52 Year
  Sex: Male
  Weight: 83.9154 kg

DRUGS (6)
  1. BYETTA [Suspect]
     Indication: DIABETES MELLITUS NON-INSULIN-DEPENDENT
     Dosage: 5 MCG;BID;SC
     Route: 058
     Dates: start: 20051028
  2. LANTUS [Concomitant]
  3. ACTOS [Concomitant]
  4. LIPITOR [Concomitant]
  5. METFORMIN [Concomitant]
  6. GLIPIZIDE [Concomitant]

REACTIONS (3)
  - ANOREXIA [None]
  - BLOOD GLUCOSE INCREASED [None]
  - NAUSEA [None]
